FAERS Safety Report 17693975 (Version 1)
Quarter: 2020Q2

REPORT INFORMATION
  Report Type: Spontaneous
  Country: BG (occurrence: BG)
  Receive Date: 20200422
  Receipt Date: 20200422
  Transmission Date: 20200714
  Serious: Yes (Death, Life-Threatening, Hospitalization, Other)
  Sender: FDA-Public Use
  Company Number: BG-BAXTER-2020BAX008628

PATIENT
  Age: 49 Year
  Sex: Female

DRUGS (7)
  1. ETOPOSIDE. [Suspect]
     Active Substance: ETOPOSIDE
     Indication: HODGKIN^S DISEASE STAGE IV
     Dosage: IN CYCLES OF 21 DAYS WITH NO DRUGS GIVEN ON DAYS 15-21; CYCLICAL
     Route: 065
  2. PREDNISOLONE. [Suspect]
     Active Substance: PREDNISOLONE
     Indication: HODGKIN^S DISEASE STAGE IV
     Dosage: IN CYCLES OF 21 DAYS WITH NO DRUGS GIVEN ON DAYS 15-21; CYCLICAL
     Route: 065
  3. DOXIL [Suspect]
     Active Substance: DOXORUBICIN HYDROCHLORIDE
     Indication: HODGKIN^S DISEASE STAGE IV
     Dosage: IN CYCLES OF 21 DAYS WITH NO DRUGS GIVEN ON DAYS 15-21; CYCLICAL
     Route: 065
  4. VINCRISTINE [Suspect]
     Active Substance: VINCRISTINE
     Indication: HODGKIN^S DISEASE STAGE IV
     Dosage: IN CYCLES OF 21 DAYS WITH NO DRUGS GIVEN ON DAYS 15-21; CYCLICAL
     Route: 065
  5. BLEOMYCIN [Suspect]
     Active Substance: BLEOMYCIN SULFATE
     Indication: HODGKIN^S DISEASE STAGE IV
     Dosage: IN CYCLES OF 21 DAYS WITH NO DRUGS GIVEN ON DAYS 15-21; CYCLICAL
     Route: 065
  6. CYCLOPHOSPHAMIDE. [Suspect]
     Active Substance: CYCLOPHOSPHAMIDE
     Indication: HODGKIN^S DISEASE STAGE IV
     Dosage: IN CYCLES OF 21 DAYS WITH NO DRUGS GIVEN ON DAYS 15-21; CYCLICAL
     Route: 065
  7. PROCARBAZINE [Suspect]
     Active Substance: PROCARBAZINE
     Indication: HODGKIN^S DISEASE STAGE IV
     Dosage: IN CYCLES OF 21 DAYS WITH NO DRUGS GIVEN ON DAYS 15-21; CYCLICAL
     Route: 065

REACTIONS (3)
  - Encephalitis [Fatal]
  - Influenza [Fatal]
  - Bone marrow failure [Not Recovered/Not Resolved]
